FAERS Safety Report 12390362 (Version 2)
Quarter: 2016Q2

REPORT INFORMATION
  Report Type: Spontaneous
  Country: GB (occurrence: GB)
  Receive Date: 20160520
  Receipt Date: 20160617
  Transmission Date: 20160815
  Serious: Yes (Other)
  Sender: FDA-Public Use
  Company Number: GB-JNJFOC-20160312387

PATIENT
  Age: 71 Year
  Sex: Female

DRUGS (2)
  1. WARFARIN [Suspect]
     Active Substance: WARFARIN
     Indication: PRODUCT USED FOR UNKNOWN INDICATION
     Route: 065
  2. SIMPONI [Suspect]
     Active Substance: GOLIMUMAB
     Indication: PRODUCT USED FOR UNKNOWN INDICATION
     Route: 058

REACTIONS (11)
  - Influenza like illness [Unknown]
  - Dysuria [Unknown]
  - Fall [Unknown]
  - Joint swelling [Unknown]
  - Oral pain [Unknown]
  - Arthralgia [Unknown]
  - Oral herpes [Unknown]
  - Pruritus [Unknown]
  - Lower respiratory tract infection [Recovered/Resolved]
  - Musculoskeletal disorder [Not Recovered/Not Resolved]
  - Psoriasis [Unknown]

NARRATIVE: CASE EVENT DATE: 201603
